FAERS Safety Report 6366759-1 (Version None)
Quarter: 2009Q3

REPORT INFORMATION
  Report Type: 
  Country: None (occurrence: None)
  Receive Date: 20090921
  Receipt Date: 20090917
  Transmission Date: 20100115
  Serious: Yes (Hospitalization, Other)
  Sender: FDA-Public Use
  Company Number: GB-ROXANE LABORATORIES, INC.-2009-RO-00944RO

PATIENT
  Age: 48 Year
  Sex: Female

DRUGS (9)
  1. LAMOTRIGINE [Suspect]
     Indication: CONVULSION
     Dosage: 25 MG
  2. LAMOTRIGINE [Suspect]
     Dosage: 50 MG
  3. CARBAMAZEPINE [Suspect]
     Indication: MYOCLONIC EPILEPSY
  4. CARBAMAZEPINE [Suspect]
  5. CEFOTAXIME [Concomitant]
     Indication: MENINGITIS ASEPTIC
     Route: 042
  6. CEFUROXIME [Concomitant]
     Indication: DRUG RASH WITH EOSINOPHILIA AND SYSTEMIC SYMPTOMS
     Dosage: 2250 MG
     Route: 042
  7. METRONIDAZOLE [Concomitant]
     Indication: DRUG RASH WITH EOSINOPHILIA AND SYSTEMIC SYMPTOMS
     Dosage: 1500 MG
     Route: 042
  8. HYDROCORTISONE [Concomitant]
     Indication: DRUG RASH WITH EOSINOPHILIA AND SYSTEMIC SYMPTOMS
     Dosage: 300 MG
     Route: 042
  9. LEVETIRACETAM [Concomitant]
     Indication: MYOCLONIC EPILEPSY

REACTIONS (3)
  - CONVULSION [None]
  - DRUG RASH WITH EOSINOPHILIA AND SYSTEMIC SYMPTOMS [None]
  - MENINGITIS ASEPTIC [None]
